FAERS Safety Report 15167024 (Version 1)
Quarter: 2018Q3

REPORT INFORMATION
  Report Type: Spontaneous
  Country: JP (occurrence: JP)
  Receive Date: 20180719
  Receipt Date: 20180719
  Transmission Date: 20181010
  Serious: Yes (Hospitalization)
  Sender: FDA-Public Use
  Company Number: JP-NAPPMUNDI-GBR-2018-0057694

PATIENT
  Sex: Male

DRUGS (15)
  1. ACETAMINOPHEN. [Concomitant]
     Active Substance: ACETAMINOPHEN
     Indication: MUSCULOSKELETAL PAIN
  2. ACETAMINOPHEN. [Concomitant]
     Active Substance: ACETAMINOPHEN
     Indication: BACK PAIN
  3. BROTIZOLAM [Concomitant]
     Active Substance: BROTIZOLAM
     Indication: MENTAL DISORDER
     Route: 048
  4. NORSPAN [Suspect]
     Active Substance: BUPRENORPHINE
     Indication: MUSCULOSKELETAL PAIN
     Dosage: 20 MCG, Q1H
     Route: 062
  5. NORSPAN [Interacting]
     Active Substance: BUPRENORPHINE
     Dosage: 5 MCG, Q1H
     Route: 062
  6. QUETIAPINE. [Interacting]
     Active Substance: QUETIAPINE
     Indication: PRODUCT USED FOR UNKNOWN INDICATION
     Dosage: 500 MG, DAILY
     Route: 048
  7. TRIAZOLAM. [Concomitant]
     Active Substance: TRIAZOLAM
     Indication: MENTAL DISORDER
     Route: 048
  8. ZOTEPINE [Concomitant]
     Active Substance: ZOTEPINE
     Indication: MENTAL DISORDER
     Route: 048
  9. FLUVOXAMINE [Concomitant]
     Active Substance: FLUVOXAMINE
     Indication: MENTAL DISORDER
     Route: 048
  10. TRAMADOL. [Concomitant]
     Active Substance: TRAMADOL
     Indication: BACK PAIN
  11. NORSPAN [Interacting]
     Active Substance: BUPRENORPHINE
     Indication: BACK PAIN
     Dosage: 10 MCG, Q1H
     Route: 062
  12. ZOPICLONE [Concomitant]
     Active Substance: ZOPICLONE
     Indication: MENTAL DISORDER
     Route: 048
  13. ZOLPIDEM [Concomitant]
     Active Substance: ZOLPIDEM\ZOLPIDEM TARTRATE
  14. ETHYL LOFLAZEPATE [Concomitant]
     Active Substance: ETHYL LOFLAZEPATE
     Indication: MENTAL DISORDER
     Route: 048
  15. TRAMADOL. [Concomitant]
     Active Substance: TRAMADOL
     Indication: MUSCULOSKELETAL PAIN

REACTIONS (11)
  - Decreased appetite [Recovering/Resolving]
  - Malaise [Recovering/Resolving]
  - Blood creatine phosphokinase increased [Recovering/Resolving]
  - Renal impairment [Recovering/Resolving]
  - Dermatitis contact [Recovering/Resolving]
  - Acute kidney injury [Recovering/Resolving]
  - Cellulitis [Recovering/Resolving]
  - Urine output decreased [Recovering/Resolving]
  - Wrong technique in product usage process [Recovering/Resolving]
  - Rhabdomyolysis [Recovering/Resolving]
  - Drug interaction [Recovering/Resolving]
